FAERS Safety Report 23585582 (Version 1)
Quarter: 2024Q1

REPORT INFORMATION
  Report Type: Spontaneous
  Country: US (occurrence: None)
  Receive Date: 20240229
  Receipt Date: 20240229
  Transmission Date: 20240410
  Serious: No
  Sender: FDA-Public Use
  Company Number: None

PATIENT
  Age: 76 Year
  Sex: Male
  Weight: 89.09 kg

DRUGS (1)
  1. REPATHA [Suspect]
     Active Substance: EVOLOCUMAB

REACTIONS (7)
  - Chest discomfort [None]
  - Headache [None]
  - Cough [None]
  - Nausea [None]
  - Abdominal pain upper [None]
  - Rhinorrhoea [None]
  - Dizziness [None]
